FAERS Safety Report 22540576 (Version 6)
Quarter: 2024Q2

REPORT INFORMATION
  Report Type: Spontaneous
  Country: CO (occurrence: CO)
  Receive Date: 20230609
  Receipt Date: 20240507
  Transmission Date: 20240716
  Serious: Yes (Hospitalization, Other)
  Sender: FDA-Public Use
  Company Number: CO-GLAXOSMITHKLINE-CO2023AMR073800

PATIENT

DRUGS (2)
  1. NUCALA [Suspect]
     Active Substance: MEPOLIZUMAB
     Indication: Asthma
     Dosage: 100 MG, MO
     Dates: start: 20221213
  2. TIOTROPIUM BROMIDE [Concomitant]
     Active Substance: TIOTROPIUM BROMIDE
     Indication: Product used for unknown indication
     Dosage: UNK (AS NEEDED)

REACTIONS (6)
  - Asthma [Not Recovered/Not Resolved]
  - Surgery [Recovered/Resolved]
  - Choking [Not Recovered/Not Resolved]
  - Influenza [Not Recovered/Not Resolved]
  - Swelling face [Recovered/Resolved]
  - Peripheral swelling [Recovered/Resolved]

NARRATIVE: CASE EVENT DATE: 20230509
